FAERS Safety Report 5164174-X (Version None)
Quarter: 2006Q4

REPORT INFORMATION
  Report Type: 
  Country: None (occurrence: None)
  Receive Date: 20060918
  Receipt Date: 20060222
  Transmission Date: 20070319
  Serious: Yes (Other)
  Sender: FDA-Public Use
  Company Number: US-JNJFOC-20051102397

PATIENT
  Age: 57 Year
  Sex: Female
  Weight: 147.419 kg

DRUGS (2)
  1. TOPAMAX [Suspect]
     Indication: NEUROPATHY
     Dosage: 200 MG, 2 IN 1 DAY, ORAL
     Route: 048
     Dates: start: 19980101
  2. GLYBURIDE [Concomitant]

REACTIONS (1)
  - WEIGHT DECREASED [None]
